FAERS Safety Report 24043201 (Version 2)
Quarter: 2024Q3

REPORT INFORMATION
  Report Type: Report from Study
  Country: EG (occurrence: EG)
  Receive Date: 20240702
  Receipt Date: 20240725
  Transmission Date: 20241017
  Serious: No
  Sender: SANDOZ
  Company Number: EG-SANDOZ-SDZ2023EG026868

PATIENT
  Sex: Male
  Weight: 27 kg

DRUGS (1)
  1. OMNITROPE [Suspect]
     Active Substance: SOMATROPIN
     Indication: Growth hormone deficiency
     Dosage: 1.5 MG, QD
     Route: 058
     Dates: start: 20230604, end: 20230909

REACTIONS (8)
  - Product dose omission issue [Unknown]
  - Multiple use of single-use product [Unknown]
  - Injury associated with device [Unknown]
  - Drug monitoring procedure incorrectly performed [Unknown]
  - Wrong technique in product usage process [Unknown]
  - Device mechanical issue [Unknown]
  - Product substitution [Unknown]
  - Product availability issue [Unknown]
